FAERS Safety Report 24080586 (Version 1)
Quarter: 2024Q3

REPORT INFORMATION
  Report Type: Spontaneous
  Country: US (occurrence: US)
  Receive Date: 20240711
  Receipt Date: 20240711
  Transmission Date: 20241016
  Serious: No
  Sender: SANDOZ
  Company Number: US-SANDOZ-SDZ2024US064563

PATIENT
  Sex: Female

DRUGS (1)
  1. HYRIMOZ [Suspect]
     Active Substance: ADALIMUMAB-ADAZ
     Indication: Hidradenitis
     Dosage: UNK
     Route: 003
     Dates: start: 20240409, end: 20240703

REACTIONS (3)
  - Condition aggravated [Unknown]
  - Alopecia [Unknown]
  - Hidradenitis [Unknown]
